FAERS Safety Report 9271574 (Version 1)
Quarter: 2013Q2

REPORT INFORMATION
  Report Type: Spontaneous
  Country: US (occurrence: US)
  Receive Date: 20130506
  Receipt Date: 20130506
  Transmission Date: 20140414
  Serious: No
  Sender: FDA-Public Use
  Company Number: US-PFIZER INC-2013136553

PATIENT
  Sex: Female

DRUGS (4)
  1. PREMARIN [Suspect]
     Indication: MENOPAUSE
     Dosage: UNK, 1X/DAY
     Route: 048
  2. ALBUTEROL [Concomitant]
     Dosage: UNK
  3. CHOLESTYRAMINE [Concomitant]
     Dosage: UNK
  4. ADVAIR [Concomitant]
     Dosage: UNK

REACTIONS (2)
  - Neutrophil count increased [Unknown]
  - White blood cell count increased [Unknown]
